FAERS Safety Report 4550229-7 (Version None)
Quarter: 2005Q1

REPORT INFORMATION
  Report Type: 
  Country: None (occurrence: None)
  Receive Date: 20050107
  Receipt Date: 20030306
  Transmission Date: 20050727
  Serious: Yes (Disabling)
  Sender: FDA-Public Use
  Company Number: 2003IM000261

PATIENT
  Age: 69 Year
  Sex: Female
  Weight: 100.6985 kg

DRUGS (7)
  1. ACTIMMUNE [Suspect]
     Indication: INTERSTITIAL LUNG DISEASE
     Dosage: 200 UG; TIW; SUBCUTANEOUS
     Route: 058
     Dates: start: 20020620
  2. COLCHICINE [Concomitant]
  3. NEXIUM [Concomitant]
  4. LANOXIN [Concomitant]
  5. LASIX [Concomitant]
  6. POTASSIUM CHLORIDE [Concomitant]
  7. LIPITOR [Concomitant]

REACTIONS (4)
  - ANAEMIA [None]
  - INJECTION SITE PHLEBITIS [None]
  - NAUSEA [None]
  - WEIGHT DECREASED [None]
